FAERS Safety Report 12627969 (Version 2)
Quarter: 2017Q2

REPORT INFORMATION
  Report Type: Spontaneous
  Country: US (occurrence: US)
  Receive Date: 20160807
  Receipt Date: 20170608
  Transmission Date: 20170830
  Serious: No
  Sender: FDA-Public Use
  Company Number: US-LUNDBECK-DKLU2015468

PATIENT
  Sex: Female

DRUGS (1)
  1. NORTHERA [Suspect]
     Active Substance: DROXIDOPA
     Indication: DIABETIC AUTONOMIC NEUROPATHY
     Route: 065
     Dates: start: 201512

REACTIONS (6)
  - Initial insomnia [Unknown]
  - Therapeutic response unexpected [Unknown]
  - Fatigue [Unknown]
  - Poor quality sleep [Unknown]
  - Depression [Unknown]
  - Asthenia [Unknown]
